FAERS Safety Report 8129263-6 (Version None)
Quarter: 2012Q1

REPORT INFORMATION
  Report Type: 
  Country: None (occurrence: None)
  Receive Date: 20120210
  Receipt Date: 20111123
  Transmission Date: 20120608
  Serious: No
  Sender: FDA-Public Use
  Company Number: US-BRISTOL-MYERS SQUIBB COMPANY-16246670

PATIENT
  Age: 58 Year
  Sex: Male

DRUGS (2)
  1. ORENCIA [Suspect]
     Indication: RHEUMATOID ARTHRITIS
     Dosage: LAST DOSE IN 01JUL2011 STARTED ORENCIA SUBCUTANEOUS
     Route: 042
  2. PREDNISONE [Concomitant]

REACTIONS (3)
  - OPEN WOUND [None]
  - STAPHYLOCOCCAL INFECTION [None]
  - DRUG INEFFECTIVE [None]
